FAERS Safety Report 14290623 (Version 1)
Quarter: 2017Q4

REPORT INFORMATION
  Report Type: Spontaneous
  Country: US (occurrence: US)
  Receive Date: 20171215
  Receipt Date: 20171215
  Transmission Date: 20180321
  Serious: Yes (Other)
  Sender: FDA-Public Use
  Company Number: None

PATIENT
  Age: 70 Year
  Sex: Female
  Weight: 71.55 kg

DRUGS (7)
  1. OMEPRAZOLE. [Concomitant]
     Active Substance: OMEPRAZOLE
  2. CITALOPRAM [Concomitant]
     Active Substance: CITALOPRAM HYDROBROMIDE
  3. AMBIEN [Concomitant]
     Active Substance: ZOLPIDEM TARTRATE
  4. ATORVASTATIN [Concomitant]
     Active Substance: ATORVASTATIN
  5. AFINITOR [Suspect]
     Active Substance: EVEROLIMUS
     Indication: BREAST CANCER
     Route: 048
     Dates: start: 20170914, end: 20171212
  6. VITAMIN D [Concomitant]
     Active Substance: CHOLECALCIFEROL
  7. FASLODEX [Concomitant]
     Active Substance: FULVESTRANT

REACTIONS (2)
  - Ageusia [None]
  - Stomatitis [None]
